FAERS Safety Report 5684163-6 (Version None)
Quarter: 2008Q1

REPORT INFORMATION
  Report Type: 
  Country: None (occurrence: None)
  Receive Date: 20080328
  Receipt Date: 20070410
  Transmission Date: 20080703
  Serious: No
  Sender: FDA-Public Use
  Company Number: US-AMGEN-KDL211788

PATIENT
  Sex: Male
  Weight: 93.1 kg

DRUGS (11)
  1. NEULASTA [Suspect]
     Indication: CHEMOTHERAPY
     Route: 058
     Dates: start: 20061227
  2. LISINOPRIL [Concomitant]
  3. HYDROCODONE BITARTRATE [Concomitant]
     Dates: start: 20061101
  4. SODIUM CHLORIDE [Concomitant]
     Dates: start: 20061001
  5. DEMECLOCYCLINE HCL [Concomitant]
     Dates: start: 20061001
  6. TYLENOL (CAPLET) [Concomitant]
  7. PEPCID [Concomitant]
  8. SENOKOT [Concomitant]
  9. NABILONE [Concomitant]
     Dates: start: 20061001
  10. CISPLATIN [Concomitant]
     Dates: start: 20061001
  11. ARANESP [Concomitant]
     Dates: start: 20061001

REACTIONS (4)
  - DYSPNOEA [None]
  - HYPOTENSION [None]
  - LUNG INFILTRATION [None]
  - OXYGEN SATURATION DECREASED [None]
